FAERS Safety Report 21167214 (Version 1)
Quarter: 2022Q3

REPORT INFORMATION
  Report Type: Spontaneous
  Country: DK (occurrence: DK)
  Receive Date: 20220803
  Receipt Date: 20220803
  Transmission Date: 20221027
  Serious: Yes (Hospitalization)
  Sender: FDA-Public Use
  Company Number: None

PATIENT
  Age: 4 Decade
  Sex: Female

DRUGS (1)
  1. ETANERCEPT [Suspect]
     Active Substance: ETANERCEPT
     Indication: Rheumatoid arthritis
     Dosage: STRENGTH: 50 MG
     Route: 058
     Dates: start: 201711

REACTIONS (8)
  - Infection [Unknown]
  - Stress urinary incontinence [Unknown]
  - Diarrhoea [Recovered/Resolved]
  - Bladder pain [Unknown]
  - Urinary bladder abscess [Unknown]
  - Abdominal pain lower [Unknown]
  - Malaise [Recovered/Resolved]
  - Pyrexia [Recovered/Resolved]

NARRATIVE: CASE EVENT DATE: 20180101
